FAERS Safety Report 6029860-8 (Version None)
Quarter: 2009Q1

REPORT INFORMATION
  Report Type: 
  Country: None (occurrence: None)
  Receive Date: 20090106
  Receipt Date: 20090106
  Transmission Date: 20090719
  Serious: Yes (Death)
  Sender: FDA-Public Use
  Company Number: None

PATIENT
  Age: 47 Year
  Sex: Male
  Weight: 56.6996 kg

DRUGS (1)
  1. LOVENOX [Suspect]
     Indication: THROMBOSIS PROPHYLAXIS
     Dosage: INJECTION GIVEN IN STOMACH DAILY 3-4 DAYS
     Dates: start: 20040519, end: 20040522

REACTIONS (3)
  - HAEMORRHAGE [None]
  - MEDICATION ERROR [None]
  - MULTIPLE DRUG OVERDOSE [None]
